FAERS Safety Report 8726640 (Version 4)
Quarter: 2013Q2

REPORT INFORMATION
  Report Type: Report from Study
  Country: CA (occurrence: CA)
  Receive Date: 20120816
  Receipt Date: 20130513
  Transmission Date: 20140414
  Serious: No
  Sender: FDA-Public Use
  Company Number: PHHY2012CA022359

PATIENT
  Age: 37 Year
  Sex: Female

DRUGS (1)
  1. GILENYA [Suspect]
     Indication: RELAPSING-REMITTING MULTIPLE SCLEROSIS
     Dosage: 0.5 MG, QD
     Route: 048
     Dates: start: 20120309

REACTIONS (9)
  - Insomnia [Unknown]
  - Hypoaesthesia [Unknown]
  - Concomitant disease aggravated [Unknown]
  - Fatigue [Unknown]
  - Anxiety [Unknown]
  - Tremor [Unknown]
  - Rash [Unknown]
  - Oropharyngeal pain [Not Recovered/Not Resolved]
  - Headache [Unknown]
